FAERS Safety Report 5416478-0 (Version None)
Quarter: 2007Q3

REPORT INFORMATION
  Report Type: 
  Country: None (occurrence: None)
  Receive Date: 20070816
  Receipt Date: 20070809
  Transmission Date: 20080115
  Serious: Yes (Hospitalization)
  Sender: FDA-Public Use
  Company Number: SE-ABBOTT-03P-150-0244300-00

PATIENT
  Sex: Female

DRUGS (4)
  1. HUMIRA [Suspect]
     Indication: RHEUMATOID ARTHRITIS
     Route: 058
     Dates: start: 20030901, end: 20031113
  2. METHOTREXATE [Concomitant]
     Dates: start: 19940101
  3. KETOPROFEN [Concomitant]
     Dates: start: 19980101
  4. ATENOLOL [Concomitant]
     Indication: HYPERTENSION
     Dates: start: 20010101

REACTIONS (2)
  - ARTHROPATHY [None]
  - JOINT TUBERCULOSIS [None]
